FAERS Safety Report 18153891 (Version 1)
Quarter: 2020Q3

REPORT INFORMATION
  Report Type: Report from Study
  Country: US (occurrence: US)
  Receive Date: 20200816
  Receipt Date: 20200816
  Transmission Date: 20201103
  Serious: No
  Sender: FDA-Public Use
  Company Number: NVSC2020US224875

PATIENT
  Sex: Male

DRUGS (1)
  1. MEKINIST [Suspect]
     Active Substance: TRAMETINIB DIMETHYL SULFOXIDE
     Indication: METASTASIS
     Dosage: 2 MG (1 TABLET BY MOUTH DAILY WITH WATER ON EMPTY STOMACH 1 HOUR BEFORE OR 2 HOURS AFTER MEAL)
     Route: 048

REACTIONS (2)
  - Influenza like illness [Not Recovered/Not Resolved]
  - Skin discolouration [Not Recovered/Not Resolved]
